FAERS Safety Report 13115133 (Version 1)
Quarter: 2017Q1

REPORT INFORMATION
  Report Type: Spontaneous
  Country: US (occurrence: US)
  Receive Date: 20170113
  Receipt Date: 20170113
  Transmission Date: 20170428
  Serious: Yes (Other)
  Sender: FDA-Public Use
  Company Number: US-SUNOVION-2016SUN003042

PATIENT
  Age: 39 Year

DRUGS (4)
  1. VRAYLAR [Concomitant]
     Active Substance: CARIPRAZINE
     Dosage: UNK
  2. LAMICTAL [Concomitant]
     Active Substance: LAMOTRIGINE
     Dosage: UNK
  3. PROZAC [Concomitant]
     Active Substance: FLUOXETINE HYDROCHLORIDE
     Dosage: UNK
  4. LATUDA [Suspect]
     Active Substance: LURASIDONE HYDROCHLORIDE
     Dosage: 40 MG, UNK
     Route: 048

REACTIONS (15)
  - Restlessness [Unknown]
  - Extrapyramidal disorder [Unknown]
  - Laziness [Unknown]
  - Thinking abnormal [Unknown]
  - Cognitive disorder [Unknown]
  - Neurological symptom [Unknown]
  - Myocardial infarction [Unknown]
  - Loss of libido [Unknown]
  - Flat affect [Unknown]
  - Emotional poverty [Unknown]
  - Feeling abnormal [Unknown]
  - Weight increased [Unknown]
  - Dyskinesia [Unknown]
  - Musculoskeletal stiffness [Unknown]
  - General physical health deterioration [Unknown]

NARRATIVE: CASE EVENT DATE: 201701
